FAERS Safety Report 5143102-7 (Version None)
Quarter: 2006Q4

REPORT INFORMATION
  Report Type: 
  Country: None (occurrence: None)
  Receive Date: 20061031
  Receipt Date: 20061031
  Transmission Date: 20070319
  Serious: Yes (Other)
  Sender: FDA-Public Use
  Company Number: None

PATIENT
  Age: 59 Year
  Sex: Female

DRUGS (15)
  1. REVLIMID [Suspect]
     Indication: MULTIPLE MYELOMA
     Dosage: 5MG  QD  PO
     Route: 048
     Dates: start: 20060812, end: 20061013
  2. ANZEMET [Concomitant]
  3. AUGMENTIN '125' [Concomitant]
  4. AREDIA [Concomitant]
  5. NEUPOGEN [Concomitant]
  6. RENAGEL [Concomitant]
  7. NYSTATIN [Concomitant]
  8. NEPHROCAPS [Concomitant]
  9. ALKERAN [Concomitant]
  10. NIFEDIPINE [Concomitant]
  11. PREDNISONE TAB [Concomitant]
  12. PHOSLO [Concomitant]
  13. AMITRIPTYLINE HCL [Concomitant]
  14. GAPAPENTIN [Concomitant]
  15. NOVOLIN [Concomitant]

REACTIONS (1)
  - PANCYTOPENIA [None]
